FAERS Safety Report 7770192-5 (Version None)
Quarter: 2011Q3

REPORT INFORMATION
  Report Type: 
  Country: None (occurrence: None)
  Receive Date: 20110922
  Receipt Date: 20110210
  Transmission Date: 20111222
  Serious: No
  Sender: FDA-Public Use
  Company Number: US-ASTRAZENECA-2011SE08177

PATIENT
  Age: 44 Year
  Sex: Female

DRUGS (5)
  1. LORAZEPAM [Concomitant]
     Indication: ANXIETY
     Dosage: AS REQUIRED
  2. SEROQUEL XR [Suspect]
     Indication: SLEEP DISORDER
     Route: 048
     Dates: start: 20100101
  3. LEXAPRO [Concomitant]
  4. SEROQUEL XR [Suspect]
     Indication: DEPRESSION
     Route: 048
     Dates: start: 20100101
  5. OPANA [Concomitant]
     Indication: BACK PAIN

REACTIONS (4)
  - INFLUENZA LIKE ILLNESS [None]
  - DRUG DOSE OMISSION [None]
  - DEPRESSION [None]
  - INSOMNIA [None]
